FAERS Safety Report 7989379-1 (Version None)
Quarter: 2011Q4

REPORT INFORMATION
  Report Type: 
  Country: None (occurrence: None)
  Receive Date: 20111216
  Receipt Date: 20111216
  Transmission Date: 20120403
  Serious: No
  Sender: FDA-Public Use
  Company Number: None

PATIENT
  Age: 54 Year
  Sex: Female

DRUGS (3)
  1. IBUPROFEN [Suspect]
     Dates: start: 20100808, end: 20100904
  2. CEFADROXIL [Suspect]
     Dates: start: 20100816, end: 20100830
  3. AUGMENTIN [Suspect]
     Dates: start: 20100906, end: 20100916

REACTIONS (7)
  - FATIGUE [None]
  - CHROMATURIA [None]
  - MALAISE [None]
  - NAUSEA [None]
  - PRURITUS [None]
  - LIVER INJURY [None]
  - HEPATITIS [None]
